FAERS Safety Report 19498993 (Version 2)
Quarter: 2021Q3

REPORT INFORMATION
  Report Type: Spontaneous
  Country: JP (occurrence: JP)
  Receive Date: 20210707
  Receipt Date: 20210811
  Transmission Date: 20211014
  Serious: No
  Sender: FDA-Public Use
  Company Number: JP-TAKEDA-2021TJP014142

PATIENT
  Age: 29 Year
  Sex: Female
  Weight: 38 kg

DRUGS (6)
  1. PREDONEMA [Concomitant]
     Active Substance: PREDNISOLONE SODIUM PHOSPHATE
     Indication: COLITIS ULCERATIVE
     Dosage: 20 MILLIGRAM, QD
     Route: 054
     Dates: start: 20201204, end: 20210204
  2. PENTASA [Concomitant]
     Active Substance: MESALAMINE
     Indication: COLITIS ULCERATIVE
     Dosage: 2000 MILLIGRAM, BID
     Route: 048
     Dates: start: 201305
  3. FERRUM [Concomitant]
     Indication: IRON DEFICIENCY ANAEMIA
     Dosage: 100 MILLIGRAM, QD
     Route: 048
     Dates: start: 20200827, end: 20210108
  4. STERONEMA [Concomitant]
     Active Substance: BETAMETHASONE SODIUM PHOSPHATE
     Indication: COLITIS ULCERATIVE
     Dosage: 3 MILLIGRAM, QD
     Route: 054
     Dates: start: 20200827, end: 20201203
  5. ENTYVIO [Suspect]
     Active Substance: VEDOLIZUMAB
     Indication: COLITIS ULCERATIVE
     Dosage: 300 MILLIGRAM, Q8WEEKS
     Route: 041
     Dates: start: 20200828, end: 20210528
  6. BIO?THREE [Concomitant]
     Active Substance: HERBALS
     Indication: COLITIS ULCERATIVE
     Dosage: 1 DOSAGE FORM, TID
     Route: 048
     Dates: start: 20180302

REACTIONS (1)
  - Alopecia [Not Recovered/Not Resolved]

NARRATIVE: CASE EVENT DATE: 202103
